FAERS Safety Report 5487081-1 (Version None)
Quarter: 2007Q3

REPORT INFORMATION
  Report Type: 
  Country: None (occurrence: None)
  Receive Date: 20070925
  Receipt Date: 20070531
  Transmission Date: 20080115
  Serious: No
  Sender: FDA-Public Use
  Company Number: 2007US001289

PATIENT
  Age: 70 Year
  Sex: Female

DRUGS (13)
  1. VESICARE [Suspect]
     Indication: HYPERTONIC BLADDER
     Dosage: 10, ORAL
     Route: 048
  2. LITHIUM CARBONATE [Concomitant]
  3. NEURONTIN [Concomitant]
  4. LEVOXYL [Concomitant]
  5. POLYETHYLENE GLYCOL (MACROGOL) [Concomitant]
  6. ASCORBIC ACID [Concomitant]
  7. CALCIUM CARBONATE [Concomitant]
  8. MAGNESIUM SULFATE [Concomitant]
  9. VITAMINERAL (VITAMINS NOS, MINERALS NOS) [Concomitant]
  10. FLAXSEED OIL (LINUM USITATISSIMUM SEED OIL) [Concomitant]
  11. OMEGA 3 FISH OIL (FISH OIL) [Concomitant]
  12. ASPIRIN [Concomitant]
  13. FISH OIL [Concomitant]

REACTIONS (1)
  - AMNESIA [None]
